FAERS Safety Report 18066919 (Version 1)
Quarter: 2020Q3

REPORT INFORMATION
  Report Type: Spontaneous
  Country: ES (occurrence: ES)
  Receive Date: 20200724
  Receipt Date: 20200724
  Transmission Date: 20201103
  Serious: Yes (Other)
  Sender: FDA-Public Use
  Company Number: ES-ROCHE-2648566

PATIENT
  Age: 62 Year
  Sex: Male
  Weight: 62.1 kg

DRUGS (13)
  1. ACICLOVIR [Concomitant]
     Active Substance: ACYCLOVIR
  2. CEMIDON [Concomitant]
     Active Substance: ISONIAZID
  3. CODEISAN [Concomitant]
     Active Substance: CODEINE PHOSPHATE
  4. FLUCONAZOL [Concomitant]
     Active Substance: FLUCONAZOLE
  5. RIVOTRIL [Suspect]
     Active Substance: CLONAZEPAM
     Indication: SEIZURE
     Dosage: PERFUSION CONTINUA 3MG/24H
     Route: 042
     Dates: start: 20200624, end: 20200625
  6. METOCLOPRAMIDA [Concomitant]
     Active Substance: METOCLOPRAMIDE HYDROCHLORIDE
  7. KONAKION [Concomitant]
     Active Substance: PHYTONADIONE
  8. ALOPURINOL [Concomitant]
     Active Substance: ALLOPURINOL
  9. OMEPRAZOLE. [Concomitant]
     Active Substance: OMEPRAZOLE
  10. METILPREDNISOLONA [Concomitant]
     Active Substance: METHYLPREDNISOLONE
  11. ONDANSETRON [Concomitant]
     Active Substance: ONDANSETRON
  12. URSOBILANE [Concomitant]
  13. SEPTRIN FORTE [Concomitant]
     Active Substance: SULFAMETHOXAZOLE\TRIMETHOPRIM

REACTIONS (1)
  - Pyrexia [Recovered/Resolved]

NARRATIVE: CASE EVENT DATE: 20200625
